FAERS Safety Report 10501366 (Version 1)
Quarter: 2014Q4

REPORT INFORMATION
  Report Type: Spontaneous
  Country: US (occurrence: None)
  Receive Date: 20141006
  Receipt Date: 20141006
  Transmission Date: 20150528
  Serious: Yes (Hospitalization)
  Sender: FDA-Public Use
  Company Number: None

PATIENT
  Age: 82 Year
  Sex: Female
  Weight: 93.2 kg

DRUGS (1)
  1. ERBITUX [Suspect]
     Active Substance: CETUXIMAB
     Dosage: THE PATIENT DID NOT RECIEVE CYCLE 11 OF CETUXIMAB

REACTIONS (6)
  - Supraventricular tachycardia [None]
  - Vomiting [None]
  - Asthenia [None]
  - Electrolyte imbalance [None]
  - Productive cough [None]
  - Nausea [None]

NARRATIVE: CASE EVENT DATE: 20140913
